FAERS Safety Report 5575170-2 (Version None)
Quarter: 2007Q4

REPORT INFORMATION
  Report Type: 
  Country: None (occurrence: None)
  Receive Date: 20071227
  Receipt Date: 20071217
  Transmission Date: 20080405
  Serious: Yes (Other)
  Sender: FDA-Public Use
  Company Number: US-PFIZER INC-2007105982

PATIENT
  Sex: Female
  Weight: 61.363 kg

DRUGS (9)
  1. NORVASC [Interacting]
     Indication: HYPERTENSION
     Route: 048
  2. AMLODIPINE [Suspect]
     Indication: HYPERTENSION
     Route: 048
     Dates: start: 20070101, end: 20070101
  3. ALBUTEROL [Suspect]
     Indication: ASTHMA
     Route: 055
  4. SYMBICORT [Suspect]
     Indication: ASTHMA
     Route: 055
     Dates: start: 20070101, end: 20070101
  5. FLOVENT [Suspect]
     Indication: ASTHMA
     Route: 055
     Dates: start: 20070101, end: 20070101
  6. CLONIDINE [Interacting]
     Indication: HYPERTENSION
  7. LIPITOR [Concomitant]
  8. PREVACID [Concomitant]
  9. ALDACTONE [Concomitant]

REACTIONS (4)
  - DRUG INTERACTION [None]
  - LIP OEDEMA [None]
  - PHARYNGEAL OEDEMA [None]
  - TONGUE OEDEMA [None]
